FAERS Safety Report 16366441 (Version 1)
Quarter: 2019Q2

REPORT INFORMATION
  Report Type: Report from Study
  Country: IT (occurrence: IT)
  Receive Date: 20190529
  Receipt Date: 20190529
  Transmission Date: 20190711
  Serious: Yes (Other)
  Sender: FDA-Public Use
  Company Number: IT-TEVA-2019-IT-1056201

PATIENT
  Age: 76 Year
  Sex: Male

DRUGS (4)
  1. VALSARTAN/IDROCLOROTIAZIDE [Concomitant]
     Active Substance: HYDROCHLOROTHIAZIDE\VALSARTAN
  2. NEBIVOLOL. [Concomitant]
     Active Substance: NEBIVOLOL
  3. DICLOFENAC [Concomitant]
     Active Substance: DICLOFENAC
  4. LORAZEPAM. [Suspect]
     Active Substance: LORAZEPAM
     Indication: ANXIETY
     Route: 048

REACTIONS (2)
  - Confusional state [Recovering/Resolving]
  - Toxicity to various agents [Recovering/Resolving]

NARRATIVE: CASE EVENT DATE: 20190322
